FAERS Safety Report 9255515 (Version 5)
Quarter: 2013Q4

REPORT INFORMATION
  Report Type: Report from Study
  Country: GB (occurrence: GB)
  Receive Date: 20130425
  Receipt Date: 20131023
  Transmission Date: 20140711
  Serious: Yes (Death, Life-Threatening, Hospitalization)
  Sender: FDA-Public Use
  Company Number: GB-GLAXOSMITHKLINE-B0820603D

PATIENT
  Age: 81 Year
  Sex: Female
  Weight: 63.2 kg

DRUGS (15)
  1. OFATUMUMAB [Suspect]
     Indication: CHRONIC LYMPHOCYTIC LEUKAEMIA
     Route: 042
     Dates: start: 20120704, end: 20120807
  2. BENDAMUSTINE [Suspect]
     Indication: CHRONIC LYMPHOCYTIC LEUKAEMIA
     Route: 042
     Dates: start: 20120704, end: 20120807
  3. PARACETAMOL [Concomitant]
  4. CHLORPHENIRAMINE [Concomitant]
  5. PREDNISOLONE [Concomitant]
     Indication: CHRONIC LYMPHOCYTIC LEUKAEMIA
     Route: 048
     Dates: start: 20120607, end: 20120704
  6. ALLOPURINOL [Concomitant]
     Indication: CHRONIC LYMPHOCYTIC LEUKAEMIA
     Route: 048
     Dates: start: 20120704
  7. METOCLOPRAMIDE [Concomitant]
     Indication: CHRONIC LYMPHOCYTIC LEUKAEMIA
     Route: 048
     Dates: start: 20120704, end: 20120807
  8. ACICLOVIR [Concomitant]
  9. GRANULOCYTE COLONY-STIMULATING FACTOR NOS [Concomitant]
  10. FRUSEMIDE [Concomitant]
     Route: 048
     Dates: start: 20120530, end: 20121119
  11. AMILORIDE [Concomitant]
     Dates: start: 20120530, end: 20121119
  12. CETIRIZINE [Concomitant]
     Route: 048
     Dates: start: 20120801, end: 20120813
  13. AZITHROMYCIN [Concomitant]
     Route: 048
     Dates: start: 20120801, end: 20120806
  14. OMEPRAZOLE [Concomitant]
     Route: 048
     Dates: start: 20120627, end: 20121119
  15. FLUCONAZOLE [Concomitant]
     Route: 048
     Dates: start: 20120704, end: 20120718

REACTIONS (8)
  - Encephalopathy [Fatal]
  - Confusional state [Not Recovered/Not Resolved]
  - Encephalitis [Fatal]
  - Oedema peripheral [Not Recovered/Not Resolved]
  - Lower respiratory tract infection [Fatal]
  - Skin infection [Not Recovered/Not Resolved]
  - Immunosuppression [Not Recovered/Not Resolved]
  - Pneumonia [Fatal]
